FAERS Safety Report 24339807 (Version 1)
Quarter: 2024Q3

REPORT INFORMATION
  Report Type: Spontaneous
  Country: US (occurrence: US)
  Receive Date: 20240919
  Receipt Date: 20240919
  Transmission Date: 20241017
  Serious: No
  Sender: PFIZER
  Company Number: US-PFIZER INC-202400258805

PATIENT
  Age: 65 Year
  Sex: Female

DRUGS (6)
  1. XELJANZ XR [Suspect]
     Active Substance: TOFACITINIB CITRATE
     Dosage: 11 MG
  2. PEPCID [Concomitant]
     Active Substance: FAMOTIDINE
  3. FOLVITE [Concomitant]
     Active Substance: FOLIC ACID
  4. TREXALL [Concomitant]
     Active Substance: METHOTREXATE SODIUM
  5. DELTASONE [Concomitant]
     Active Substance: PREDNISONE
  6. ROZEREM [Concomitant]
     Active Substance: RAMELTEON

REACTIONS (1)
  - Headache [Unknown]
